FAERS Safety Report 7444476-4 (Version None)
Quarter: 2011Q2

REPORT INFORMATION
  Report Type: 
  Country: None (occurrence: None)
  Receive Date: 20110427
  Receipt Date: 20110427
  Transmission Date: 20111010
  Serious: Yes (Other)
  Sender: FDA-Public Use
  Company Number: None

PATIENT
  Sex: Female
  Weight: 61.2356 kg

DRUGS (2)
  1. RECLAST [Suspect]
     Indication: OSTEOPOROSIS
     Dosage: 100 ML ANNUALLY IV DRIP
     Route: 041
     Dates: start: 20090803, end: 20090803
  2. RECLAST [Suspect]
     Indication: OSTEOPOROSIS
     Dosage: 100 ML ANNUALLY IV DRIP
     Route: 041
     Dates: start: 20101001, end: 20101001

REACTIONS (2)
  - TIBIA FRACTURE [None]
  - STRESS FRACTURE [None]
